FAERS Safety Report 23438468 (Version 1)
Quarter: 2024Q1

REPORT INFORMATION
  Report Type: Spontaneous
  Country: US (occurrence: None)
  Receive Date: 20240123
  Receipt Date: 20240123
  Transmission Date: 20240409
  Serious: No
  Sender: FDA-Public Use
  Company Number: None

PATIENT
  Sex: Female
  Weight: 58.51 kg

DRUGS (4)
  1. LUGOLS STRONG IODINE [Suspect]
     Active Substance: IODINE\POTASSIUM IODIDE
     Indication: Vitamin supplementation
     Dosage: FREQUENCY : DAILY;?
     Route: 048
     Dates: start: 20230116, end: 20230118
  2. INSULIN NOS [Concomitant]
     Active Substance: INSULIN NOS
  3. INSULIN NOS [Concomitant]
     Active Substance: INSULIN NOS
  4. VITAMIN D [Concomitant]
     Active Substance: VITAMIN D NOS

REACTIONS (6)
  - Toxicity to various agents [None]
  - Toxicity to various agents [None]
  - Pain [None]
  - Product complaint [None]
  - Physical product label issue [None]
  - Product lot number issue [None]
